FAERS Safety Report 11029947 (Version 1)
Quarter: 2015Q2

REPORT INFORMATION
  Report Type: Report from Study
  Country: US (occurrence: US)
  Receive Date: 20150415
  Receipt Date: 20150415
  Transmission Date: 20150821
  Serious: Yes (Hospitalization)
  Sender: FDA-Public Use
  Company Number: US-BIOGENIDEC-2014BI058998

PATIENT
  Age: 26 Year
  Sex: Female

DRUGS (3)
  1. AMPYRA [Concomitant]
     Active Substance: DALFAMPRIDINE
     Indication: GAIT DISTURBANCE
     Dates: start: 201410
  2. TECFIDERA [Suspect]
     Active Substance: DIMETHYL FUMARATE
     Indication: MULTIPLE SCLEROSIS
     Route: 048
     Dates: start: 20130816, end: 201308
  3. TECFIDERA [Suspect]
     Active Substance: DIMETHYL FUMARATE
     Indication: MULTIPLE SCLEROSIS
     Route: 048
     Dates: start: 20130822, end: 201407

REACTIONS (15)
  - Pain in extremity [Not Recovered/Not Resolved]
  - Chest pain [Recovered/Resolved]
  - Muscular weakness [Unknown]
  - Drug ineffective [Unknown]
  - Hyperaesthesia [Recovered/Resolved]
  - Fatigue [Not Recovered/Not Resolved]
  - Anxiety [Unknown]
  - Night sweats [Recovered/Resolved]
  - Muscle strain [Recovered/Resolved]
  - Carpal tunnel syndrome [Recovered/Resolved]
  - Sensory disturbance [Unknown]
  - Temperature intolerance [Recovered/Resolved]
  - Central nervous system lesion [Not Recovered/Not Resolved]
  - Depression [Unknown]
  - Back pain [Recovered/Resolved]

NARRATIVE: CASE EVENT DATE: 2013
